FAERS Safety Report 15751438 (Version 3)
Quarter: 2019Q1

REPORT INFORMATION
  Report Type: Spontaneous
  Country: US (occurrence: US)
  Receive Date: 20181221
  Receipt Date: 20190108
  Transmission Date: 20190417
  Serious: No
  Sender: FDA-Public Use
  Company Number: US-GLAXOSMITHKLINE-US2018226835

PATIENT
  Age: 55 Year
  Sex: Male

DRUGS (2)
  1. NICORETTE CINNAMON SURGE [Suspect]
     Active Substance: NICOTINE
     Dosage: UNK
  2. NICORETTE CINNAMON SURGE [Suspect]
     Active Substance: NICOTINE
     Indication: SMOKING CESSATION THERAPY
     Dosage: 2 MG, UNK,30 TO 45 PIECES A DAY
     Route: 002
     Dates: start: 201501

REACTIONS (11)
  - Overdose [Unknown]
  - Noninfective gingivitis [Unknown]
  - Malaise [Unknown]
  - Tongue erythema [Unknown]
  - Lip blister [Unknown]
  - Oral mucosal blistering [Unknown]
  - Nausea [Unknown]
  - Tongue discomfort [Unknown]
  - Hypersensitivity [Unknown]
  - Product complaint [Unknown]
  - Pain in jaw [Unknown]
